FAERS Safety Report 7630964-4 (Version None)
Quarter: 2011Q3

REPORT INFORMATION
  Report Type: 
  Country: None (occurrence: None)
  Receive Date: 20110725
  Receipt Date: 20110714
  Transmission Date: 20111222
  Serious: Yes (Hospitalization, Other)
  Sender: FDA-Public Use
  Company Number: US-BIOGENIDEC-2010BI019728

PATIENT
  Age: 61 Year
  Sex: Female

DRUGS (4)
  1. AVONEX [Suspect]
     Route: 030
     Dates: start: 20040501, end: 20081001
  2. AVONEX [Suspect]
     Route: 030
     Dates: start: 20101101
  3. AVONEX [Suspect]
     Indication: MULTIPLE SCLEROSIS
     Route: 030
     Dates: start: 20090501, end: 20100601
  4. AVONEX [Suspect]
     Route: 030
     Dates: start: 19991001

REACTIONS (3)
  - HAEMORRHAGE [None]
  - BREAST CANCER [None]
  - THROMBOSIS [None]
